FAERS Safety Report 14229484 (Version 1)
Quarter: 2017Q4

REPORT INFORMATION
  Report Type: Spontaneous
  Country: US (occurrence: None)
  Receive Date: 20171127
  Receipt Date: 20171127
  Transmission Date: 20180321
  Serious: No
  Sender: FDA-Public Use
  Company Number: None

PATIENT
  Age: 10 Year
  Sex: Male
  Weight: 32.39 kg

DRUGS (1)
  1. ATOMOXETINE 18MG [Suspect]
     Active Substance: ATOMOXETINE
     Indication: ATTENTION DEFICIT/HYPERACTIVITY DISORDER
     Route: 048
     Dates: start: 20170819, end: 20171025

REACTIONS (3)
  - Product substitution issue [None]
  - Sleep talking [None]
  - Sleep disorder [None]

NARRATIVE: CASE EVENT DATE: 20170819
